FAERS Safety Report 5239596-9 (Version None)
Quarter: 2007Q1

REPORT INFORMATION
  Report Type: 
  Country: None (occurrence: None)
  Receive Date: 20070212
  Receipt Date: 20070130
  Transmission Date: 20070707
  Serious: Yes (Hospitalization)
  Sender: FDA-Public Use
  Company Number: 152505ISR

PATIENT
  Age: 55 Year
  Sex: Female

DRUGS (4)
  1. BISOPROLOL FUMARATE [Suspect]
     Dosage: 5 MG (5 MG, 1 IN 1 D)
     Dates: start: 19980101
  2. LEVETIRACETAM [Suspect]
     Dosage: 1500 MG (750 MG, 2 IN 1 D)
     Dates: start: 20030120
  3. OXCARBAZEPINE [Suspect]
     Dosage: 900 MG (300 MG, 3 IN 1 D)
     Dates: start: 20060911
  4. OXAZEPAM [Concomitant]

REACTIONS (2)
  - CONDITION AGGRAVATED [None]
  - NEPHROLITHIASIS [None]
